FAERS Safety Report 9340390 (Version 1)
Quarter: 2013Q2

REPORT INFORMATION
  Report Type: Spontaneous
  Country: GB (occurrence: GB)
  Receive Date: 20130610
  Receipt Date: 20130610
  Transmission Date: 20140414
  Serious: Yes (Hospitalization, Other)
  Sender: FDA-Public Use
  Company Number: GB-ELI_LILLY_AND_COMPANY-GB201306000816

PATIENT
  Age: 82 Year
  Sex: Female

DRUGS (2)
  1. FORSTEO [Suspect]
  2. METHOTREXATE [Concomitant]

REACTIONS (4)
  - Cerebrovascular accident [Recovered/Resolved]
  - Vomiting [Recovered/Resolved]
  - Headache [Recovered/Resolved]
  - Injection site haemorrhage [Recovered/Resolved]
